FAERS Safety Report 22385976 (Version 3)
Quarter: 2024Q2

REPORT INFORMATION
  Report Type: Spontaneous
  Country: US (occurrence: US)
  Receive Date: 20230530
  Receipt Date: 20240528
  Transmission Date: 20240716
  Serious: No
  Sender: FDA-Public Use
  Company Number: US-PERRIGO-23US004768

PATIENT
  Age: 82 Year
  Sex: Female
  Weight: 59.864 kg

DRUGS (3)
  1. MINOXIDIL [Suspect]
     Active Substance: MINOXIDIL
     Indication: Alopecia
     Dosage: 2 SQUIRTS, BID
     Route: 061
     Dates: start: 20230307, end: 20230414
  2. MINOXIDIL [Suspect]
     Active Substance: MINOXIDIL
     Dosage: 2 SQUIRTS, QD
     Route: 061
     Dates: start: 20230415
  3. MINOXIDIL [Suspect]
     Active Substance: MINOXIDIL
     Dosage: UNKNOWN, QD
     Route: 061

REACTIONS (7)
  - Hair growth abnormal [Unknown]
  - Condition aggravated [Not Recovered/Not Resolved]
  - Drug ineffective [Unknown]
  - Drug effect less than expected [Unknown]
  - Incorrect dose administered [Unknown]
  - Wrong technique in product usage process [Unknown]
  - Inappropriate schedule of product administration [Recovered/Resolved]

NARRATIVE: CASE EVENT DATE: 20230307
